FAERS Safety Report 20201744 (Version 1)
Quarter: 2021Q4

REPORT INFORMATION
  Report Type: Spontaneous
  Country: US (occurrence: US)
  Receive Date: 20211217
  Receipt Date: 20211217
  Transmission Date: 20220304
  Serious: Yes (Hospitalization)
  Sender: FDA-Public Use
  Company Number: US-UNITED THERAPEUTICS-UNT-2021-025487

PATIENT
  Age: 84 Year
  Sex: Female
  Weight: 45.805 kg

DRUGS (3)
  1. TYVASO [Suspect]
     Active Substance: TREPROSTINIL
     Indication: Pulmonary arterial hypertension
     Dosage: UNK
     Dates: start: 20151217
  2. TYVASO [Suspect]
     Active Substance: TREPROSTINIL
     Dosage: 90-108 ?G, QID
  3. TYVASO [Suspect]
     Active Substance: TREPROSTINIL
     Dosage: 108 ?G, QID
     Dates: end: 20211205

REACTIONS (4)
  - Discomfort [Not Recovered/Not Resolved]
  - Aphonia [Not Recovered/Not Resolved]
  - Pain [Unknown]
  - Off label use [Unknown]

NARRATIVE: CASE EVENT DATE: 20211205
